FAERS Safety Report 10510252 (Version 2)
Quarter: 2014Q4

REPORT INFORMATION
  Report Type: Spontaneous
  Country: US (occurrence: None)
  Receive Date: 20141008
  Receipt Date: 20141027
  Transmission Date: 20150528
  Serious: Yes (Hospitalization)
  Sender: FDA-Public Use
  Company Number: FK201403921

PATIENT
  Age: 59 Year
  Sex: Female
  Weight: 81.3 kg

DRUGS (23)
  1. IRINOTECAN (IRINOTECAN) (IRINOTECAN) [Suspect]
     Active Substance: IRINOTECAN
     Indication: PANCREATIC CARCINOMA
     Dosage: EVERY 2 WEEKS (NOT OTHERWISE SPECIFIED)
     Route: 042
     Dates: start: 20140801, end: 20140903
  2. LISINOPRIL (LISINOPRIL) [Concomitant]
     Active Substance: LISINOPRIL
  3. POTASSIUM CHLORIDE (POTASSIUM CHLORIDE) [Concomitant]
     Active Substance: POTASSIUM CHLORIDE
  4. SENNA [Concomitant]
     Active Substance: SENNA LEAF\SENNOSIDES\SENNOSIDES A AND B
  5. OMEPRAZOLE (OMEPRAZOLE) [Concomitant]
     Active Substance: OMEPRAZOLE
  6. VITAMIN B-6 (PYRIDOXINE HYDROCHLORIDE) [Concomitant]
  7. LEUCOVORIN (LEUCOVORIN) [Suspect]
     Active Substance: LEUCOVORIN
     Indication: PANCREATIC CARCINOMA
     Dosage: EVERY 2 WEEKS
     Route: 042
     Dates: start: 20140801, end: 20140903
  8. LIDOCAINE HYDROCHLORIDE (LIDOCAINE HYDROCHLORIDE) [Concomitant]
  9. LOPERAMIDE (LOPERAMIDE) [Concomitant]
     Active Substance: LOPERAMIDE
  10. ONDANSETRON. [Concomitant]
     Active Substance: ONDANSETRON
  11. ATROPINE (ATROPINE) [Concomitant]
  12. DRONABINOL (DRONABINOL) [Concomitant]
  13. PREGABALIN (PREGABALIN) [Concomitant]
     Active Substance: PREGABALIN
  14. INVESTIGATIONAL DRUG (INVESTIGATIONAL DRUG) (INVESTIGATIONAL DRUG) [Suspect]
     Active Substance: INVESTIGATIONAL PRODUCT
     Indication: PANCREATIC CARCINOMA
     Route: 048
     Dates: start: 20140801, end: 20140903
  15. PARACETAMOL (PARACETAMOL) [Concomitant]
     Active Substance: ACETAMINOPHEN
  16. SIMETHICON (SIMETICONE) [Concomitant]
  17. FLUOROURACIL (MANUFACTURER UNKNOWN) (FLUOROURACIL) (FLUOROURACIL) [Suspect]
     Active Substance: FLUOROURACIL
     Indication: PANCREATIC CARCINOMA
     Dosage: EVERY 2 WEEKS
     Route: 042
     Dates: start: 20140801, end: 20140903
  18. OXALIPLATIN (OXALIPLATIN) (OXALIPLATIN) [Suspect]
     Active Substance: OXALIPLATIN
     Indication: PANCREATIC CARCINOMA
     Dosage: EVERY 2 WEEKS
     Route: 042
     Dates: start: 20140801, end: 20140903
  19. PRILOCAINE HYDROCHLORIDE (PRILOCAINE HYDROCHLORIDE) [Concomitant]
  20. MACROGOL (MACROGOL) [Concomitant]
  21. OXYCODONE HYDROCHLORIDE (OXYCODONE HYDROCHLORIDE) [Concomitant]
     Active Substance: OXYCODONE HYDROCHLORIDE
  22. VITAMIN D (ERGOCALCIFEROL) [Concomitant]
     Active Substance: ERGOCALCIFEROL
  23. PROCHLORPERAZINE MALEATE (PROCHLORPERAZINE MALEATE) [Concomitant]
     Active Substance: PROCHLORPERAZINE MALEATE

REACTIONS (3)
  - Bile duct obstruction [None]
  - Infection [None]
  - Haemoglobin decreased [None]

NARRATIVE: CASE EVENT DATE: 20140903
